FAERS Safety Report 5947616-9 (Version None)
Quarter: 2008Q4

REPORT INFORMATION
  Report Type: 
  Country: None (occurrence: None)
  Receive Date: 20081107
  Receipt Date: 20081103
  Transmission Date: 20090506
  Serious: Yes (Other)
  Sender: FDA-Public Use
  Company Number: 2008SP014329

PATIENT
  Age: 53 Year
  Sex: Female
  Weight: 69 kg

DRUGS (3)
  1. ALBUTEROL [Suspect]
     Indication: ASTHMA
     Dosage: PRN
     Dates: start: 20060829
  2. SUNITINIB [Suspect]
     Indication: BREAST CANCER
     Dosage: 25 MG;QD;PO
     Route: 048
     Dates: start: 20080214, end: 20080226
  3. PACLITAXEL [Suspect]
     Indication: BREAST CANCER
     Dosage: 90 MG; QD
     Dates: start: 20080214, end: 20080226

REACTIONS (1)
  - THROMBOCYTOPENIA [None]
